FAERS Safety Report 4729045-9 (Version None)
Quarter: 2005Q3

REPORT INFORMATION
  Report Type: 
  Country: None (occurrence: None)
  Receive Date: 20050729
  Receipt Date: 20050218
  Transmission Date: 20060218
  Serious: No
  Sender: FDA-Public Use
  Company Number: US-GLAXOSMITHKLINE-A0546296A

PATIENT
  Sex: Female

DRUGS (2)
  1. IMITREX [Suspect]
     Indication: MIGRAINE
     Dosage: 25MG AS REQUIRED
     Route: 048
  2. ESTRATEST [Concomitant]

REACTIONS (6)
  - BURNING SENSATION [None]
  - DIZZINESS [None]
  - ILL-DEFINED DISORDER [None]
  - MYALGIA [None]
  - PAIN OF SKIN [None]
  - SOMNOLENCE [None]
